FAERS Safety Report 9395510 (Version 1)
Quarter: 2013Q3

REPORT INFORMATION
  Report Type: Spontaneous
  Country: FR (occurrence: FR)
  Receive Date: 20130711
  Receipt Date: 20130711
  Transmission Date: 20140515
  Serious: Yes (Death)
  Sender: FDA-Public Use
  Company Number: FR-ELI_LILLY_AND_COMPANY-FR201307001693

PATIENT
  Age: 35 Year
  Sex: Female
  Weight: 58 kg

DRUGS (6)
  1. ZYPREXA [Suspect]
     Indication: BIPOLAR DISORDER
     Dosage: 40 MG, QD
     Route: 048
     Dates: start: 2008, end: 2008
  2. ZYPREXA [Suspect]
     Dosage: 20 MG, QD
     Dates: start: 2008, end: 2008
  3. DEPAKOTE [Concomitant]
     Dosage: 250 DF, UNKNOWN
  4. RIVOTRIL [Concomitant]
     Dosage: UNK
  5. TERCIAN                            /00759301/ [Concomitant]
     Dosage: UNK
  6. THERALENE [Concomitant]
     Dosage: UNK

REACTIONS (5)
  - Death [Fatal]
  - Toxicity to various agents [Fatal]
  - Arrhythmia [Fatal]
  - Agitation [Unknown]
  - Prescribed overdose [Not Recovered/Not Resolved]
